FAERS Safety Report 11416592 (Version 1)
Quarter: 2015Q3

REPORT INFORMATION
  Report Type: Spontaneous
  Country: US (occurrence: US)
  Receive Date: 20150825
  Receipt Date: 20150825
  Transmission Date: 20151125
  Serious: No
  Sender: FDA-Public Use
  Company Number: US-GUERBET LLC-1041342

PATIENT
  Age: 33 Year
  Sex: Male
  Weight: 88 kg

DRUGS (1)
  1. DOTAREM [Suspect]
     Active Substance: GADOTERATE MEGLUMINE
     Indication: FACIAL PAIN
     Route: 042
     Dates: start: 20140613, end: 20140613

REACTIONS (3)
  - Injection site swelling [Recovered/Resolved]
  - Vein disorder [Recovered/Resolved]
  - Injection site pain [Recovered/Resolved]

NARRATIVE: CASE EVENT DATE: 20140614
